FAERS Safety Report 6195116-6 (Version None)
Quarter: 2009Q2

REPORT INFORMATION
  Report Type: 
  Country: None (occurrence: None)
  Receive Date: 20090519
  Receipt Date: 20090513
  Transmission Date: 20091009
  Serious: Yes (Hospitalization, Other)
  Sender: FDA-Public Use
  Company Number: BR-BAYER-200818711LA

PATIENT
  Age: 25 Year
  Sex: Female

DRUGS (6)
  1. BETAFERON [Suspect]
     Indication: MULTIPLE SCLEROSIS
     Route: 058
     Dates: start: 20080918, end: 20080918
  2. BETAFERON [Suspect]
     Route: 058
     Dates: start: 20080924
  3. VENLAFAXINE HCL [Concomitant]
     Indication: DEPRESSION
     Route: 065
     Dates: start: 20081101
  4. VENLAFAXINE HCL [Concomitant]
     Route: 065
  5. VENLAFAXINE HCL [Concomitant]
     Route: 065
     Dates: end: 20090427
  6. DIANE [Concomitant]
     Indication: POLYCYSTIC OVARIES
     Route: 065
     Dates: start: 20081001

REACTIONS (6)
  - CONVULSION [None]
  - HEADACHE [None]
  - INJECTION SITE RASH [None]
  - MENSTRUAL DISORDER [None]
  - PRESYNCOPE [None]
  - VOMITING [None]
